FAERS Safety Report 9025246 (Version 1)
Quarter: 2012Q4

REPORT INFORMATION
  Report Type: 
  Country: PL (occurrence: PL)
  Receive Date: 20121211
  Receipt Date: 20121211
  Transmission Date: 20130627
  Serious: Yes (Hospitalization, Other)
  Sender: FDA-Public Use
  Company Number: PHHY2012PL113175

PATIENT
  Age: 76 Year

DRUGS (21)
  1. SANDIMMUN NEORAL / OL [Suspect]
     Dosage: 300 mg, BID
  2. SANDIMMUN NEORAL / OL [Suspect]
     Dosage: 175 mg
  3. SANDIMMUN NEORAL / OL [Suspect]
     Dosage: 75 mg, BID
  4. SANDIMMUN NEORAL / OL [Suspect]
     Dosage: 125 mg
  5. AZATHIOPRINE [Concomitant]
     Dosage: 125 mg, daiy
     Dates: end: 200802
  6. SOLUMEDROL [Concomitant]
  7. ENCORTON [Concomitant]
     Dosage: 5 mg, daily
     Dates: end: 200508
  8. EUTHYROX [Concomitant]
     Dosage: 100 ug, daily
  9. CORDARONE [Concomitant]
  10. FUROSEMID [Concomitant]
  11. METOCARD [Concomitant]
  12. CALPEROS [Concomitant]
  13. ASMAG [Concomitant]
  14. OXAZEPAM [Concomitant]
  15. FAMOGAST [Concomitant]
  16. OSTENIL [Concomitant]
     Dates: end: 200705
  17. AMLOZEK [Concomitant]
     Dosage: 5 mg, daily
     Dates: start: 200605
  18. CERTICAN [Concomitant]
     Dosage: 0.75 mg, BID
     Dates: start: 20120620
  19. BONVIVA [Concomitant]
     Dates: start: 200705
  20. DOPEGYT [Concomitant]
     Dosage: 0.5 DF, BID
     Route: 048
     Dates: start: 200608
  21. MYFORTIC [Concomitant]
     Dosage: 360 mg, BID
     Dates: start: 200802

REACTIONS (18)
  - Osteoporosis [Unknown]
  - Back pain [Unknown]
  - Nerve root compression [Unknown]
  - Compression fracture [Unknown]
  - Intervertebral disc disorder [Unknown]
  - Bronchitis [Unknown]
  - Diabetes mellitus [Unknown]
  - Radiculopathy [Unknown]
  - Limb injury [Unknown]
  - Grand mal convulsion [Unknown]
  - Lung neoplasm malignant [Unknown]
  - Dyspnoea [Unknown]
  - Muscular weakness [Unknown]
  - Blood pressure increased [Unknown]
  - Herpes zoster [Unknown]
  - Hypotension [Unknown]
  - Palpitations [Unknown]
  - Oedema peripheral [Unknown]
